FAERS Safety Report 5946204-8 (Version None)
Quarter: 2008Q4

REPORT INFORMATION
  Report Type: 
  Country: None (occurrence: None)
  Receive Date: 20081106
  Receipt Date: 20081106
  Transmission Date: 20090506
  Serious: Yes (Other)
  Sender: FDA-Public Use
  Company Number: None

PATIENT
  Age: 15 Year
  Sex: Male
  Weight: 81 kg

DRUGS (1)
  1. LINEZOLID [Suspect]
     Indication: STAPHYLOCOCCAL OSTEOMYELITIS
     Dosage: 600MG Q12 IV BOLUS
     Route: 040
     Dates: start: 20080522, end: 20080929

REACTIONS (4)
  - BURNING SENSATION [None]
  - NEUROPATHY PERIPHERAL [None]
  - PAIN [None]
  - PARAESTHESIA [None]
